FAERS Safety Report 16065372 (Version 2)
Quarter: 2019Q1

REPORT INFORMATION
  Report Type: Spontaneous
  Country: JP (occurrence: JP)
  Receive Date: 20190313
  Receipt Date: 20190327
  Transmission Date: 20190418
  Serious: Yes (Hospitalization)
  Sender: FDA-Public Use
  Company Number: JP-ROCHE-2280958

PATIENT
  Age: 66 Year
  Sex: Female

DRUGS (12)
  1. VALSARTAN. [Concomitant]
     Active Substance: VALSARTAN
     Dosage: DOSAGE IS UNCERTAIN.
     Route: 065
  2. PACLITAXEL ALBUMIN [Concomitant]
     Active Substance: PACLITAXEL
     Indication: LUNG ADENOCARCINOMA
     Dosage: DOSAGE IS UNCERTAIN.
     Route: 041
     Dates: start: 20170629, end: 20180111
  3. TARCEVA [Suspect]
     Active Substance: ERLOTINIB HYDROCHLORIDE
     Route: 048
     Dates: start: 20180220, end: 20180516
  4. TARCEVA [Suspect]
     Active Substance: ERLOTINIB HYDROCHLORIDE
     Route: 048
     Dates: start: 20180517, end: 20190227
  5. AVASTIN [Suspect]
     Active Substance: BEVACIZUMAB
     Indication: LUNG ADENOCARCINOMA
     Route: 041
     Dates: start: 20180220, end: 20190221
  6. CARBOPLATIN. [Concomitant]
     Active Substance: CARBOPLATIN
     Indication: LUNG ADENOCARCINOMA
     Dosage: DOSAGE IS UNCERTAIN.
     Route: 041
     Dates: start: 20161013, end: 2017
  7. CEFCAPENE PIVOXIL HYDROCHLORIDE HYDRATE [Concomitant]
     Active Substance: CEFCAPENE PIVOXIL HYDROCHLORIDE HYDRATE
     Dosage: DOSAGE IS UNCERTAIN.
     Route: 065
  8. TARCEVA [Suspect]
     Active Substance: ERLOTINIB HYDROCHLORIDE
     Indication: LUNG ADENOCARCINOMA
     Route: 048
     Dates: start: 20150330, end: 20160927
  9. KALLIDINOGENASE [Concomitant]
     Active Substance: KALLIDINOGENASE
     Dosage: DOSAGE IS UNCERTAIN.
     Route: 065
     Dates: start: 20180220
  10. MIYA-BM [Concomitant]
     Active Substance: CLOSTRIDIUM BUTYRICUM SPORES STRAIN M-55
     Dosage: DOSAGE IS UNCERTAIN.
     Route: 048
  11. PEMETREXED SODIUM HYDRATE [Concomitant]
     Active Substance: PEMETREXED
     Indication: LUNG ADENOCARCINOMA
     Dosage: DOSAGE IS UNCERTAIN.
     Route: 041
     Dates: start: 20161013, end: 20170413
  12. NEXIUM [Concomitant]
     Active Substance: ESOMEPRAZOLE MAGNESIUM
     Dosage: DOSAGE IS UNCERTAIN.
     Route: 048

REACTIONS (5)
  - Epistaxis [Recovered/Resolved]
  - Proteinuria [Recovering/Resolving]
  - Ulcerative keratitis [Unknown]
  - Macular oedema [Recovering/Resolving]
  - Trichiasis [Unknown]

NARRATIVE: CASE EVENT DATE: 201508
